FAERS Safety Report 20446948 (Version 1)
Quarter: 2022Q1

REPORT INFORMATION
  Report Type: Spontaneous
  Country: US (occurrence: US)
  Receive Date: 20220208
  Receipt Date: 20220208
  Transmission Date: 20220423
  Serious: No
  Sender: FDA-Public Use
  Company Number: US-HETERO-HET2022US00311

PATIENT

DRUGS (4)
  1. RITONAVIR [Interacting]
     Active Substance: RITONAVIR
     Indication: COVID-19
     Dosage: 2X/DAY (1 TABLET IN THE MORNING AND EVENING)
     Route: 065
     Dates: start: 20220127
  2. AMLODIPINE BESYLATE [Interacting]
     Active Substance: AMLODIPINE BESYLATE
     Indication: Hypertension
     Dosage: 10MG ONCE DAILY IN THE EVENING
     Route: 065
  3. LOSARTAN POTASSIUM [Concomitant]
     Active Substance: LOSARTAN POTASSIUM
     Indication: Hypertension
     Dosage: UNK
     Route: 065
  4. CLONIDINE [Concomitant]
     Active Substance: CLONIDINE
     Indication: Product used for unknown indication
     Dosage: UNK
     Route: 065

REACTIONS (2)
  - Dysgeusia [Not Recovered/Not Resolved]
  - Labelled drug-drug interaction issue [Unknown]

NARRATIVE: CASE EVENT DATE: 20220127
